FAERS Safety Report 16953029 (Version 1)
Quarter: 2019Q4

REPORT INFORMATION
  Report Type: Spontaneous
  Country: GB (occurrence: GB)
  Receive Date: 20191023
  Receipt Date: 20191023
  Transmission Date: 20200122
  Serious: Yes (Hospitalization, Disabling, Other)
  Sender: FDA-Public Use
  Company Number: GB-BAUSCH-BL-2019-022756

PATIENT
  Age: 27 Year
  Sex: Female

DRUGS (4)
  1. LEMTRADA [Suspect]
     Active Substance: ALEMTUZUMAB
     Route: 065
     Dates: start: 201702
  2. IMIQUIMOD. [Suspect]
     Active Substance: IMIQUIMOD
     Route: 065
  3. LEMTRADA [Suspect]
     Active Substance: ALEMTUZUMAB
     Indication: RELAPSING-REMITTING MULTIPLE SCLEROSIS
     Route: 041
     Dates: start: 20170116, end: 20170120
  4. IMIQUIMOD. [Suspect]
     Active Substance: IMIQUIMOD
     Indication: ANOGENITAL WARTS
     Route: 065
     Dates: start: 201709

REACTIONS (18)
  - Cognitive disorder [Unknown]
  - CSF protein abnormal [Unknown]
  - Magnetic resonance imaging abnormal [Unknown]
  - Brain stem syndrome [Recovering/Resolving]
  - Quadriparesis [Recovering/Resolving]
  - Autoimmune disorder [Unknown]
  - Anogenital warts [Unknown]
  - Leukoencephalopathy [Recovering/Resolving]
  - Encephalopathy [Unknown]
  - Multiple sclerosis relapse [Unknown]
  - Neurological decompensation [Unknown]
  - Toxoplasmosis [Unknown]
  - Motor dysfunction [Recovering/Resolving]
  - Aphasia [Recovering/Resolving]
  - Bedridden [Recovering/Resolving]
  - B-lymphocyte count increased [Unknown]
  - T-lymphocyte count decreased [Not Recovered/Not Resolved]
  - Multiple sclerosis [Unknown]

NARRATIVE: CASE EVENT DATE: 201709
